FAERS Safety Report 11071676 (Version 1)
Quarter: 2015Q2

REPORT INFORMATION
  Report Type: Spontaneous
  Country: SE (occurrence: SE)
  Receive Date: 20150428
  Receipt Date: 20150428
  Transmission Date: 20150821
  Serious: Yes (Disabling)
  Sender: FDA-Public Use
  Company Number: SE-TEVA-558052ISR

PATIENT
  Sex: Male

DRUGS (2)
  1. FELODIPINE. [Suspect]
     Active Substance: FELODIPINE
     Route: 048
  2. ENALAPRIL [Suspect]
     Active Substance: ENALAPRIL
     Route: 065

REACTIONS (5)
  - Dry skin [Not Recovered/Not Resolved]
  - Swollen tongue [Not Recovered/Not Resolved]
  - Blister [Not Recovered/Not Resolved]
  - Peripheral swelling [Not Recovered/Not Resolved]
  - Skin exfoliation [Not Recovered/Not Resolved]
